FAERS Safety Report 8909860 (Version 1)
Quarter: 2012Q4

REPORT INFORMATION
  Report Type: 
  Country: US (occurrence: US)
  Receive Date: 20121114
  Receipt Date: 20121114
  Transmission Date: 20130627
  Serious: Yes (Other)
  Sender: FDA-Public Use
  Company Number: US-PFIZER INC-2012280428

PATIENT
  Sex: Female

DRUGS (2)
  1. XALATAN [Suspect]
     Indication: ANGLE GLAUCOMA CLOSED
     Dosage: UNK
     Route: 047
  2. SYSTANE [Concomitant]
     Dosage: UNK (2 -3 drops in both eyes), UNK
     Route: 047

REACTIONS (3)
  - Blindness unilateral [Unknown]
  - Visual impairment [Unknown]
  - Vision blurred [Unknown]
